FAERS Safety Report 7421708-X (Version None)
Quarter: 2011Q1

REPORT INFORMATION
  Report Type: 
  Country: None (occurrence: None)
  Receive Date: 20110302
  Receipt Date: 20101123
  Transmission Date: 20110831
  Serious: No
  Sender: FDA-Public Use
  Company Number: 022570

PATIENT
  Sex: Female
  Weight: 93.9 kg

DRUGS (6)
  1. IBUPROFEN [Concomitant]
  2. VITAMIN D [Concomitant]
  3. IMURAN [Concomitant]
  4. VITAMIN D [Concomitant]
  5. PRENATAL VITAMINS [Concomitant]
  6. CIMZIA [Suspect]
     Indication: CROHN'S DISEASE
     Dosage: 400 MG 1X/MONTH SUBCUTANEOUS
     Route: 058
     Dates: start: 20100707

REACTIONS (2)
  - GASTROENTERITIS [None]
  - LARYNGITIS [None]
